FAERS Safety Report 4619991-9 (Version None)
Quarter: 2005Q1

REPORT INFORMATION
  Report Type: 
  Country: None (occurrence: None)
  Receive Date: 20050323
  Receipt Date: 20050323
  Transmission Date: 20050727
  Serious: Yes (Other)
  Sender: FDA-Public Use
  Company Number: None

PATIENT
  Age: 69 Year
  Sex: Male
  Weight: 107.0489 kg

DRUGS (2)
  1. XANAX [Suspect]
     Indication: ANXIETY
     Dosage: 0.5 GM TID
  2. REMERON [Suspect]
     Indication: INSOMNIA
     Dosage: 45 GM HS

REACTIONS (4)
  - HYPOAESTHESIA [None]
  - PARAESTHESIA [None]
  - PHARMACEUTICAL PRODUCT COMPLAINT [None]
  - SYNCOPE [None]
